FAERS Safety Report 21551011 (Version 1)
Quarter: 2022Q4

REPORT INFORMATION
  Report Type: Other
  Country: None (occurrence: US)
  Receive Date: 20221103
  Receipt Date: 20221103
  Transmission Date: 20230112
  Serious: Yes (Hospitalization)
  Sender: FDA-Public Use
  Company Number: US-B.Braun Medical Inc.-2134486

PATIENT
  Age: 25 Year
  Sex: Male

DRUGS (6)
  1. SODIUM CHLORIDE [Suspect]
     Active Substance: SODIUM CHLORIDE
  2. SODIUM BICARBONATE [Suspect]
     Active Substance: SODIUM BICARBONATE
  3. LEVETIRACETAM [Suspect]
     Active Substance: LEVETIRACETAM
  4. MIDAZOLAM [Suspect]
     Active Substance: MIDAZOLAM
  5. ONDANSETRON [Suspect]
     Active Substance: ONDANSETRON
  6. RABEPRAZOLE SODIUM [Suspect]
     Active Substance: RABEPRAZOLE SODIUM

REACTIONS (1)
  - Drug ineffective [Unknown]
